FAERS Safety Report 11393780 (Version 1)
Quarter: 2015Q3

REPORT INFORMATION
  Report Type: Report from Study
  Country: US (occurrence: US)
  Receive Date: 20150819
  Receipt Date: 20150819
  Transmission Date: 20151125
  Serious: No
  Sender: FDA-Public Use
  Company Number: US-AMGEN-USASL2015079983

PATIENT
  Age: 51 Year
  Sex: Female

DRUGS (1)
  1. ENBREL [Suspect]
     Active Substance: ETANERCEPT
     Indication: PSORIASIS
     Dosage: 50 MG, 2 TIMES/WK
     Route: 065

REACTIONS (8)
  - Muscle twitching [Unknown]
  - Pruritus [Unknown]
  - Secretion discharge [Unknown]
  - Pain [Unknown]
  - Psoriasis [Not Recovered/Not Resolved]
  - Peripheral swelling [Unknown]
  - Arthritis [Unknown]
  - Stress [Unknown]

NARRATIVE: CASE EVENT DATE: 201507
